FAERS Safety Report 21537012 (Version 5)
Quarter: 2023Q1

REPORT INFORMATION
  Report Type: Spontaneous
  Country: US (occurrence: US)
  Receive Date: 20221101
  Receipt Date: 20230124
  Transmission Date: 20230418
  Serious: No
  Sender: FDA-Public Use
  Company Number: US-PFIZER INC-202201269314

PATIENT
  Age: 68 Year
  Sex: Female
  Weight: 59.87 kg

DRUGS (4)
  1. DEPO-ESTRADIOL [Suspect]
     Active Substance: ESTRADIOL CYPIONATE
     Indication: Radical hysterectomy
     Dosage: 1 ML, MONTHLY
     Dates: start: 1990, end: 202208
  2. DEPO-ESTRADIOL [Suspect]
     Active Substance: ESTRADIOL CYPIONATE
     Indication: Cervix carcinoma
     Dosage: 1 ML, MONTHLY (1 ML INJECTION EVERY 30 DAYS)
     Route: 030
  3. DEPO-ESTRADIOL [Suspect]
     Active Substance: ESTRADIOL CYPIONATE
     Indication: Menopausal symptoms
  4. LEVOXYL [Concomitant]
     Active Substance: LEVOTHYROXINE SODIUM
     Dosage: UNK

REACTIONS (4)
  - Product dose omission issue [Unknown]
  - Product supply issue [Unknown]
  - Therapeutic response unexpected [Unknown]
  - Sinus disorder [Unknown]
